FAERS Safety Report 5016567-9 (Version None)
Quarter: 2006Q2

REPORT INFORMATION
  Report Type: 
  Country: None (occurrence: None)
  Receive Date: 20060602
  Receipt Date: 20060421
  Transmission Date: 20061013
  Serious: Yes (Hospitalization, Other)
  Sender: FDA-Public Use
  Company Number: PHNU2006PL01747

PATIENT
  Sex: Male
  Weight: 94 kg

DRUGS (4)
  1. TRILEPTAL [Suspect]
     Indication: EPILEPSY
     Dosage: UP TO TO 900 MG/DAY
     Route: 048
     Dates: start: 20050601, end: 20060301
  2. DEPAKENE [Concomitant]
     Dosage: 600 MG, BID
     Route: 048
     Dates: start: 20020301
  3. LISIPROL [Concomitant]
     Dosage: 5 MG, QD
     Route: 065
     Dates: start: 20020301
  4. BETALOC ZOK [Concomitant]
     Dosage: 100 MG, QD
     Route: 065
     Dates: start: 20020301

REACTIONS (7)
  - ABDOMINAL PAIN [None]
  - APPENDICECTOMY [None]
  - CHROMATURIA [None]
  - COGNITIVE DISORDER [None]
  - DISTURBANCE IN ATTENTION [None]
  - HYPOAESTHESIA [None]
  - PORPHYRIA [None]
